FAERS Safety Report 17049938 (Version 1)
Quarter: 2019Q4

REPORT INFORMATION
  Report Type: Spontaneous
  Country: DE (occurrence: DE)
  Receive Date: 20191119
  Receipt Date: 20191119
  Transmission Date: 20200122
  Serious: Yes (Other)
  Sender: FDA-Public Use
  Company Number: DE-MYLANLABS-2019M1110192

PATIENT
  Age: 42 Year
  Sex: Female
  Weight: 80 kg

DRUGS (4)
  1. GINGIUM INTENS [Concomitant]
     Indication: ORGANIC BRAIN SYNDROME
     Dosage: 120 [MG/D ]
     Route: 048
     Dates: start: 20180319, end: 20180427
  2. LEVETIRACETAM. [Concomitant]
     Active Substance: LEVETIRACETAM
     Indication: EPILEPSY
     Dosage: 1500 [MG/D (2X750 BZW. 3X500 MG/D) ]
     Route: 048
     Dates: start: 20180319, end: 20181212
  3. PIRACETAM [Concomitant]
     Active Substance: PIRACETAM
     Indication: ORGANIC BRAIN SYNDROME
     Dosage: 1200 [MG/D ]
     Route: 048
     Dates: start: 20180319, end: 20180427
  4. QUETIAPINE. [Suspect]
     Active Substance: QUETIAPINE
     Indication: ORGANIC BRAIN SYNDROME
     Dosage: 50 [MG/D ]
     Route: 048
     Dates: start: 20180319, end: 20181212

REACTIONS (2)
  - Gestational diabetes [Recovered/Resolved]
  - Maternal exposure during pregnancy [Unknown]
